FAERS Safety Report 6612801-X (Version None)
Quarter: 2010Q1

REPORT INFORMATION
  Report Type: 
  Country: None (occurrence: None)
  Receive Date: 20100303
  Receipt Date: 20100223
  Transmission Date: 20100710
  Serious: Yes (Hospitalization)
  Sender: FDA-Public Use
  Company Number: FR-GENENTECH-298180

PATIENT
  Sex: Female

DRUGS (3)
  1. BLINDED PLACEBO [Suspect]
     Indication: SJOGREN'S SYNDROME
     Dosage: UNK
     Route: 042
     Dates: start: 20100205
  2. BLINDED RITUXIMAB [Suspect]
     Indication: SJOGREN'S SYNDROME
     Dosage: UNK
     Route: 042
     Dates: start: 20100205
  3. PLAQUENIL [Concomitant]
     Indication: DRUG USE FOR UNKNOWN INDICATION
     Dosage: UNK
     Route: 048
     Dates: start: 20030101

REACTIONS (2)
  - PARAESTHESIA [None]
  - SERUM SICKNESS [None]
